FAERS Safety Report 13896521 (Version 1)
Quarter: 2017Q3

REPORT INFORMATION
  Report Type: Spontaneous
  Country: US (occurrence: US)
  Receive Date: 20170822
  Receipt Date: 20170822
  Transmission Date: 20171127
  Serious: Yes (Other)
  Sender: FDA-Public Use
  Company Number: None

PATIENT
  Age: 66 Year
  Sex: Female
  Weight: 49.5 kg

DRUGS (6)
  1. B VITAMINS [Concomitant]
     Active Substance: CYANOCOBALAMIN\DEXPANTHENOL\NIACINAMIDE\PYRIDOXINE HYDROCHLORIDE\RIBOFLAVIN 5^-PHOSPHATE SODIUM\THIAMINE HYDROCHLORIDE\VITAMIN B COMPLEX
  2. MAGNESIUM [Concomitant]
     Active Substance: MAGNESIUM
  3. PREDNISONE. [Suspect]
     Active Substance: PREDNISONE
     Indication: RESPIRATORY DISORDER
     Dosage: ?          QUANTITY:2 TABLET(S);?
     Route: 048
  4. PREDNISONE. [Suspect]
     Active Substance: PREDNISONE
     Indication: SINUSITIS
     Dosage: ?          QUANTITY:2 TABLET(S);?
     Route: 048
  5. PREDNISONE. [Suspect]
     Active Substance: PREDNISONE
     Indication: NASAL POLYPS
     Dosage: ?          QUANTITY:2 TABLET(S);?
     Route: 048
  6. ZYLEUTIN [Concomitant]

REACTIONS (5)
  - Basal cell carcinoma [None]
  - Haemorrhagic diathesis [None]
  - Skin cancer [None]
  - Squamous cell carcinoma of skin [None]
  - Impaired healing [None]

NARRATIVE: CASE EVENT DATE: 20170814
